FAERS Safety Report 9924767 (Version 2)
Quarter: 2014Q1

REPORT INFORMATION
  Report Type: Report from Study
  Country: CA (occurrence: CA)
  Receive Date: 20140226
  Receipt Date: 20140306
  Transmission Date: 20141002
  Serious: Yes (Hospitalization)
  Sender: FDA-Public Use
  Company Number: CA-JNJFOC-20140213494

PATIENT
  Age: 44 Year
  Sex: Female
  Weight: 79.83 kg

DRUGS (5)
  1. REMICADE [Suspect]
     Indication: CROHN^S DISEASE
     Route: 042
     Dates: start: 201101
  2. REMICADE [Suspect]
     Indication: CROHN^S DISEASE
     Route: 042
     Dates: start: 201010
  3. CYMBALTA [Concomitant]
     Route: 065
  4. IMURAN [Concomitant]
     Route: 065
  5. VITAMIN B [Concomitant]
     Route: 065

REACTIONS (4)
  - Crohn^s disease [Not Recovered/Not Resolved]
  - Nephrolithiasis [Not Recovered/Not Resolved]
  - Flank pain [Recovered/Resolved]
  - Abdominal distension [Recovered/Resolved]
